FAERS Safety Report 7825780-4 (Version None)
Quarter: 2011Q4

REPORT INFORMATION
  Report Type: 
  Country: None (occurrence: None)
  Receive Date: 20111019
  Receipt Date: 20111013
  Transmission Date: 20120403
  Serious: Yes (Other)
  Sender: FDA-Public Use
  Company Number: AU-JNJFOC-20110707605

PATIENT
  Sex: Female

DRUGS (8)
  1. TOPICAL STEROID [Concomitant]
  2. STELARA [Suspect]
     Route: 058
     Dates: start: 20110901
  3. STELARA [Suspect]
     Route: 058
     Dates: start: 20110602
  4. STELARA [Suspect]
     Route: 058
     Dates: start: 20101129
  5. STELARA [Suspect]
     Route: 058
     Dates: start: 20100528
  6. STELARA [Suspect]
     Route: 058
     Dates: start: 20110301
  7. STELARA [Suspect]
     Indication: PSORIASIS
     Route: 058
     Dates: start: 20100428
  8. STELARA [Suspect]
     Route: 058
     Dates: start: 20100828

REACTIONS (2)
  - KNEE ARTHROPLASTY [None]
  - THERAPEUTIC RESPONSE DECREASED [None]
